FAERS Safety Report 14172618 (Version 4)
Quarter: 2018Q1

REPORT INFORMATION
  Report Type: Report from Study
  Country: DE (occurrence: DE)
  Receive Date: 20171109
  Receipt Date: 20180108
  Transmission Date: 20180508
  Serious: Yes (Hospitalization, Other)
  Sender: FDA-Public Use
  Company Number: DE-BRISTOL-MYERS SQUIBB COMPANY-BMS-2017-099993

PATIENT

DRUGS (7)
  1. DACARBAZINE. [Suspect]
     Active Substance: DACARBAZINE
     Indication: HODGKIN^S DISEASE
     Dosage: 375 MG/M2, UNK
     Route: 065
     Dates: start: 20171025
  2. STEROFUNDIN [Concomitant]
     Active Substance: CALCIUM CHLORIDE\MAGNESIUM CHLORIDE\POTASSIUM CHLORIDE\SODIUM ACETATE\SODIUM CHLORIDE
     Indication: PRODUCT USED FOR UNKNOWN INDICATION
     Dosage: 1000 ML, UNK
     Route: 065
     Dates: start: 20171220, end: 20171220
  3. DOXORUBICIN HYDROCHLORIDE. [Suspect]
     Active Substance: DOXORUBICIN HYDROCHLORIDE
     Indication: HODGKIN^S DISEASE
     Dosage: 25 MG/M2, UNK
     Route: 065
     Dates: start: 20171025
  4. VINBLASTINE SULFATE. [Suspect]
     Active Substance: VINBLASTINE SULFATE
     Indication: HODGKIN^S DISEASE
     Dosage: 6 MG/M2, UNK
     Route: 065
     Dates: start: 20171025
  5. CARBIMAZOL [Concomitant]
     Active Substance: CARBIMAZOLE
     Indication: PRODUCT USED FOR UNKNOWN INDICATION
     Dosage: 20 MG, UNK
     Route: 065
     Dates: start: 20171221
  6. ONDANSETRON [Concomitant]
     Active Substance: ONDANSETRON
     Indication: PRODUCT USED FOR UNKNOWN INDICATION
     Dosage: 8 MG, UNK
     Route: 065
     Dates: start: 20171220, end: 20171220
  7. NIVOLUMAB [Suspect]
     Active Substance: NIVOLUMAB
     Indication: HODGKIN^S DISEASE
     Dosage: 240 MG, UNK
     Route: 065
     Dates: start: 20171025

REACTIONS (2)
  - Pyrexia [Recovered/Resolved]
  - Device related infection [Recovered/Resolved]

NARRATIVE: CASE EVENT DATE: 20171102
